FAERS Safety Report 4661787-6 (Version None)
Quarter: 2005Q2

REPORT INFORMATION
  Report Type: 
  Country: None (occurrence: None)
  Receive Date: 20050513
  Receipt Date: 20050203
  Transmission Date: 20051028
  Serious: Yes (Other)
  Sender: FDA-Public Use
  Company Number: 2005UW01922

PATIENT
  Age: 63 Year
  Sex: Female
  Weight: 84.1 kg

DRUGS (2)
  1. PRILOSEC OTC [Suspect]
     Indication: GASTROOESOPHAGEAL REFLUX DISEASE
     Route: 048
     Dates: start: 20041217, end: 20050202
  2. ENALAPRIL MALEATE [Concomitant]
     Indication: HYPERTENSION
     Route: 048

REACTIONS (5)
  - CHEST WALL PAIN [None]
  - CHOLELITHIASIS [None]
  - CONSTIPATION [None]
  - GRAND MAL CONVULSION [None]
  - TONGUE BITING [None]
